FAERS Safety Report 9803355 (Version 1)
Quarter: 2014Q1

REPORT INFORMATION
  Report Type: Spontaneous
  Country: US (occurrence: US)
  Receive Date: 20140108
  Receipt Date: 20140108
  Transmission Date: 20141002
  Serious: Yes (Life-Threatening, Hospitalization)
  Sender: FDA-Public Use
  Company Number: US-SA-2014SA001963

PATIENT
  Age: 28 Year
  Sex: Female
  Weight: 70.5 kg

DRUGS (3)
  1. HECTOROL [Suspect]
     Indication: HYPERPARATHYROIDISM SECONDARY
     Dosage: INTRAVENOUS PUSH
     Route: 042
     Dates: start: 20131219
  2. EPOGEN [Concomitant]
     Dosage: DOSE:20000 UNIT(S)
  3. HEPARIN [Concomitant]
     Dosage: HEPARIN 5000 UNIT BOLUS DOSE:5000 UNIT(S)

REACTIONS (3)
  - Dyspnoea [Recovering/Resolving]
  - Anxiety [Unknown]
  - Face oedema [Unknown]
